FAERS Safety Report 14561696 (Version 3)
Quarter: 2018Q1

REPORT INFORMATION
  Report Type: Report from Study
  Country: AU (occurrence: AU)
  Receive Date: 20180222
  Receipt Date: 20180323
  Transmission Date: 20180509
  Serious: Yes (Death)
  Sender: FDA-Public Use
  Company Number: AU-ASTRAZENECA-2018SE08916

PATIENT
  Age: 18934 Day
  Sex: Male

DRUGS (3)
  1. TAGRISSO [Suspect]
     Active Substance: OSIMERTINIB
     Indication: LUNG NEOPLASM MALIGNANT
     Route: 048
     Dates: start: 201711, end: 201712
  2. TAGRISSO [Suspect]
     Active Substance: OSIMERTINIB
     Indication: LUNG NEOPLASM MALIGNANT
     Route: 048
     Dates: start: 20171201, end: 20180116
  3. TAGRISSO [Suspect]
     Active Substance: OSIMERTINIB
     Indication: LUNG NEOPLASM MALIGNANT
     Route: 048
     Dates: start: 20180117

REACTIONS (4)
  - Malignant neoplasm progression [Fatal]
  - Fatigue [Unknown]
  - Lung cancer metastatic [Fatal]
  - Lethargy [Unknown]

NARRATIVE: CASE EVENT DATE: 20180202
